FAERS Safety Report 16019384 (Version 1)
Quarter: 2019Q1

REPORT INFORMATION
  Report Type: Other
  Country: US (occurrence: US)
  Receive Date: 20190228
  Receipt Date: 20190228
  Transmission Date: 20190418
  Serious: Yes (Life-Threatening)
  Sender: FDA-Public Use
  Company Number: US-STANDARD HOMEOPATHIC COMPANY-2063361

PATIENT
  Age: 13 Month
  Sex: Female

DRUGS (1)
  1. HYLAND^S BABY NIGHTTIME TINY COLD [Suspect]
     Active Substance: HOMEOPATHICS
     Route: 048
     Dates: start: 20190207, end: 20190211

REACTIONS (1)
  - Seizure [Unknown]

NARRATIVE: CASE EVENT DATE: 20190207
